FAERS Safety Report 5629531-3 (Version None)
Quarter: 2008Q1

REPORT INFORMATION
  Report Type: 
  Country: None (occurrence: None)
  Receive Date: 20080218
  Receipt Date: 20080206
  Transmission Date: 20080703
  Serious: Yes (Hospitalization, Other)
  Sender: FDA-Public Use
  Company Number: US-ROCHE-525383

PATIENT
  Age: 51 Year
  Sex: Female

DRUGS (4)
  1. PEG-INTERFERON A-2A (RO 25-8310) [Suspect]
     Dosage: FORM: PRE-FILLED SYRINGE
     Route: 065
     Dates: start: 20071003, end: 20071201
  2. RIBAVIRIN [Suspect]
     Route: 065
     Dates: start: 20071003, end: 20071201
  3. PAXIL [Concomitant]
  4. SEROQUEL [Concomitant]

REACTIONS (18)
  - ABDOMINAL PAIN UPPER [None]
  - ANOREXIA [None]
  - CANDIDIASIS [None]
  - CRYING [None]
  - DEHYDRATION [None]
  - DRY SKIN [None]
  - DYSGEUSIA [None]
  - FATIGUE [None]
  - FEELING HOT [None]
  - FLUID RETENTION [None]
  - HALLUCINATION [None]
  - HYPERSOMNIA [None]
  - LOSS OF CONSCIOUSNESS [None]
  - MEDICATION ERROR [None]
  - NAUSEA [None]
  - PALPITATIONS [None]
  - PULMONARY MASS [None]
  - VOMITING [None]
